FAERS Safety Report 9096489 (Version 1)
Quarter: 2013Q1

REPORT INFORMATION
  Report Type: Spontaneous
  Country: DE (occurrence: DE)
  Receive Date: 20130211
  Receipt Date: 20130211
  Transmission Date: 20140127
  Serious: Yes (Hospitalization, Other)
  Sender: FDA-Public Use
  Company Number: DE-ELI_LILLY_AND_COMPANY-DE201302000214

PATIENT
  Age: 14 Year
  Sex: Female

DRUGS (2)
  1. OLANZAPINE [Suspect]
     Indication: SCHIZOPHRENIA
     Dosage: UNK
  2. QUETIAPINE [Concomitant]
     Dosage: 600 UNK, UNK

REACTIONS (8)
  - Catatonia [Recovered/Resolved]
  - Pneumonia [Unknown]
  - Camptocormia [None]
  - Malnutrition [None]
  - Incoherent [None]
  - Echolalia [None]
  - Verbigeration [None]
  - Stereotypy [None]
